FAERS Safety Report 5290615-3 (Version None)
Quarter: 2007Q1

REPORT INFORMATION
  Report Type: 
  Country: None (occurrence: None)
  Receive Date: 20070119
  Receipt Date: 20050928
  Transmission Date: 20070707
  Serious: Yes (Other)
  Sender: FDA-Public Use
  Company Number: 2005VX000543

PATIENT
  Sex: Female

DRUGS (5)
  1. LIBRAX [Suspect]
     Dosage: 2 DF; PO
     Route: 048
  2. RALOXIFENE HCL [Suspect]
     Indication: OSTEOPOROSIS
     Dosage: 60 MG; PO
     Route: 048
  3. LEVOTHYROXINE SODIUM [Suspect]
     Dosage: PO
     Route: 048
  4. CALCIUM GLUCONATE [Suspect]
     Dosage: PO
     Route: 048
  5. CALCIUM CARBONATE (CALCIUM CARBONATE) [Suspect]
     Dosage: PO
     Route: 048

REACTIONS (2)
  - HEART RATE INCREASED [None]
  - TACHYCARDIA [None]
